FAERS Safety Report 7489286-7 (Version None)
Quarter: 2011Q2

REPORT INFORMATION
  Report Type: 
  Country: None (occurrence: None)
  Receive Date: 20110518
  Receipt Date: 20110510
  Transmission Date: 20111010
  Serious: Yes (Hospitalization)
  Sender: FDA-Public Use
  Company Number: FR-SANOFI-AVENTIS-2011SA028918

PATIENT
  Age: 79 Year
  Sex: Male
  Weight: 60 kg

DRUGS (13)
  1. NEURONTIN [Concomitant]
     Route: 048
  2. ESOMEPRAZOLE MAGNESIUM [Suspect]
     Route: 048
     Dates: start: 20110325, end: 20110414
  3. ALENDRONIC ACID [Concomitant]
     Route: 048
  4. EFFEXOR [Suspect]
     Indication: DEPRESSION
     Route: 048
     Dates: end: 20110413
  5. PYOSTACINE [Suspect]
     Indication: ESCHAR
     Route: 048
     Dates: start: 20110405, end: 20110415
  6. ACETAMINOPHEN [Suspect]
     Indication: PAIN
     Route: 048
     Dates: start: 20110325, end: 20110414
  7. SECTRAL [Concomitant]
     Dosage: DOSE:0.5 UNIT(S)
     Route: 048
  8. LOVENOX [Suspect]
     Indication: THROMBOSIS PROPHYLAXIS
     Route: 058
     Dates: start: 20110325, end: 20110412
  9. OXYCONTIN [Concomitant]
     Route: 048
     Dates: start: 20110325
  10. FLAGYL [Suspect]
     Indication: ESCHAR
     Route: 065
     Dates: start: 20110330, end: 20110405
  11. OFLOXACIN [Suspect]
     Indication: OSTEITIS
     Route: 065
     Dates: start: 20110330, end: 20110405
  12. LANSOPRAZOLE [Concomitant]
     Route: 048
  13. FOLIC ACID [Concomitant]
     Route: 048

REACTIONS (5)
  - LYMPHOPENIA [None]
  - PANCYTOPENIA [None]
  - NEUTROPENIA [None]
  - THROMBOCYTOPENIA [None]
  - ANAEMIA [None]
